FAERS Safety Report 10039810 (Version 2)
Quarter: 2014Q2

REPORT INFORMATION
  Report Type: Spontaneous
  Country: US (occurrence: US)
  Receive Date: 20140326
  Receipt Date: 20140425
  Transmission Date: 20141212
  Serious: Yes (Hospitalization, Other)
  Sender: FDA-Public Use
  Company Number: US-JNJFOC-20140308971

PATIENT
  Age: 22 Year
  Sex: Female

DRUGS (2)
  1. RISPERDAL [Suspect]
     Indication: ABNORMAL BEHAVIOUR
     Route: 048
     Dates: start: 20120824, end: 201402
  2. RISPERDAL [Suspect]
     Indication: ABNORMAL BEHAVIOUR
     Route: 048
     Dates: end: 20120824

REACTIONS (5)
  - Thrombotic thrombocytopenic purpura [Unknown]
  - Leukopenia [Unknown]
  - Condition aggravated [Unknown]
  - Muscle twitching [Unknown]
  - Inappropriate schedule of drug administration [Unknown]
